FAERS Safety Report 4269571-2 (Version None)
Quarter: 2004Q1

REPORT INFORMATION
  Report Type: 
  Country: None (occurrence: None)
  Receive Date: 20040112
  Receipt Date: 20040106
  Transmission Date: 20041129
  Serious: Yes (Death)
  Sender: FDA-Public Use
  Company Number: 2004-111474-NL

PATIENT
  Age: 24 Month
  Sex: Male

DRUGS (3)
  1. DEXAMETHASONE [Suspect]
     Indication: LARYNGOTRACHEO BRONCHITIS
     Dosage: 4 MG, ORAL
     Route: 048
     Dates: start: 20031113, end: 20031114
  2. ACETAMINOPHEN [Concomitant]
  3. IBUPROFEN [Concomitant]

REACTIONS (2)
  - INFLUENZA [None]
  - PNEUMOCOCCAL SEPSIS [None]
